FAERS Safety Report 8460033-5 (Version None)
Quarter: 2012Q2

REPORT INFORMATION
  Report Type: 
  Country: None (occurrence: None)
  Receive Date: 20120622
  Receipt Date: 20120615
  Transmission Date: 20120825
  Serious: Yes (Death, Life-Threatening)
  Sender: FDA-Public Use
  Company Number: FR-BAYER-2012-059476

PATIENT
  Age: 51 Year
  Sex: Male

DRUGS (17)
  1. LANSOPRAZOLE [Suspect]
     Dosage: 30 MG, QD
     Route: 048
     Dates: start: 20120501, end: 20120510
  2. GENTAMICIN [Suspect]
     Dosage: 210 MG, QD
     Route: 042
     Dates: start: 20120425, end: 20120425
  3. TARGOCID [Concomitant]
  4. POTASSIUM CHLORIDE [Concomitant]
     Dosage: 600 MG, TID
     Dates: start: 20120506, end: 20120506
  5. CANCIDAS [Concomitant]
  6. CIPROFLOXACIN [Suspect]
     Indication: STAPHYLOCOCCAL BACTERAEMIA
     Dosage: 1 DF, QD
     Route: 042
     Dates: start: 20120425, end: 20120427
  7. ORBENIN CAP [Suspect]
     Indication: STAPHYLOCOCCAL BACTERAEMIA
     Dosage: 1 DF, QID
     Route: 042
     Dates: start: 20120425, end: 20120510
  8. ORBENIN CAP [Suspect]
     Dosage: 250 MG/ 2.5 ML
  9. VITAMIN B6 [Concomitant]
     Dosage: 1 DF, QD
     Route: 048
     Dates: end: 20120508
  10. VITAMIN B1 TAB [Concomitant]
     Dosage: 1 DF, QD
     Dates: end: 20120508
  11. MEROPENEM [Concomitant]
  12. ALBUMIN (HUMAN) [Suspect]
     Dosage: UNK
     Route: 042
     Dates: start: 20120501, end: 20120509
  13. LASIX [Suspect]
     Dosage: UNK
     Route: 042
     Dates: start: 20120501, end: 20120509
  14. NEXIUM [Concomitant]
     Dosage: 40 MG, QD
     Route: 042
     Dates: start: 20120430
  15. ROCEPHIN [Suspect]
     Dosage: 1 G, QD
     Route: 042
     Dates: start: 20120503, end: 20120510
  16. NOREPINEPHRINE BITARTRATE [Suspect]
     Indication: HYPOTENSION
     Dosage: 0.9 MG, Q1HR
     Route: 042
     Dates: start: 20120430
  17. TAZOBACTAM [Concomitant]
     Dosage: UNK
     Dates: start: 20120510

REACTIONS (8)
  - THROMBOCYTOPENIA [None]
  - ENTEROCOCCAL SEPSIS [None]
  - HEPATIC NEOPLASM MALIGNANT [None]
  - ABDOMINAL PAIN [None]
  - LEUKOPENIA [None]
  - RENAL FAILURE [None]
  - ENCEPHALOPATHY [None]
  - HYPERBILIRUBINAEMIA [None]
